FAERS Safety Report 9427478 (Version 1)
Quarter: 2013Q3

REPORT INFORMATION
  Report Type: Spontaneous
  Country: US (occurrence: None)
  Receive Date: 20130729
  Receipt Date: 20130729
  Transmission Date: 20140515
  Serious: No
  Sender: FDA-Public Use
  Company Number: None

PATIENT
  Age: 55 Year
  Sex: Female
  Weight: 55.34 kg

DRUGS (4)
  1. BONIVA [Suspect]
     Dosage: 3MG?1 INFUSION?Q3 MONTHS?IV
     Route: 042
     Dates: start: 201101, end: 201307
  2. ALUESCO [Concomitant]
  3. DAILY VITE [Concomitant]
  4. VIT D + CALCIUM [Concomitant]

REACTIONS (10)
  - Pruritus [None]
  - Arthralgia [None]
  - Influenza like illness [None]
  - Muscle spasms [None]
  - Dizziness [None]
  - Back pain [None]
  - Back pain [None]
  - Neck pain [None]
  - Musculoskeletal pain [None]
  - Rash erythematous [None]
